FAERS Safety Report 24324289 (Version 2)
Quarter: 2024Q3

REPORT INFORMATION
  Report Type: Spontaneous
  Country: US (occurrence: US)
  Receive Date: 20240916
  Receipt Date: 20240926
  Transmission Date: 20241016
  Serious: Yes (Other)
  Sender: SANOFI AVENTIS
  Company Number: US-SANOFI-02211082

PATIENT
  Age: 74 Year
  Sex: Male

DRUGS (2)
  1. DUPIXENT [Suspect]
     Active Substance: DUPILUMAB
     Indication: Eczema
     Dosage: 300 MG, QOW
     Route: 058
     Dates: start: 202405
  2. SODIUM [Concomitant]
     Active Substance: SODIUM
     Dosage: UNK

REACTIONS (3)
  - Neoplasm malignant [Unknown]
  - Cough [Unknown]
  - Hypokinesia [Unknown]

NARRATIVE: CASE EVENT DATE: 20240101
